FAERS Safety Report 8176659-2 (Version None)
Quarter: 2012Q1

REPORT INFORMATION
  Report Type: 
  Country: None (occurrence: None)
  Receive Date: 20120301
  Receipt Date: 20120224
  Transmission Date: 20120608
  Serious: Yes (Death, Other)
  Sender: FDA-Public Use
  Company Number: JP-JNJFOC-20120210607

PATIENT
  Age: 7 Decade
  Sex: Male

DRUGS (2)
  1. FENTANYL-100 [Suspect]
     Indication: CANCER PAIN
     Route: 062
     Dates: start: 20120218, end: 20120220
  2. FENTANYL-100 [Suspect]
     Route: 062
     Dates: end: 20120218

REACTIONS (2)
  - LARGE INTESTINE CARCINOMA [None]
  - DELIRIUM [None]
